FAERS Safety Report 4907302-0 (Version None)
Quarter: 2006Q1

REPORT INFORMATION
  Report Type: 
  Country: None (occurrence: None)
  Receive Date: 20060208
  Receipt Date: 20060208
  Transmission Date: 20060701
  Serious: Yes (Hospitalization)
  Sender: FDA-Public Use
  Company Number: None

PATIENT
  Age: 29 Year
  Sex: Female
  Weight: 70.3075 kg

DRUGS (5)
  1. AUGMENTIN '125' [Suspect]
     Indication: SINUSITIS
     Dosage: 1 MONTH PRIOR TO EVENT
  2. DEPO-PROVERA [Concomitant]
  3. BACLOFEN [Concomitant]
  4. ALBUTEROL [Concomitant]
  5. INHALER [Concomitant]

REACTIONS (4)
  - ABDOMINAL PAIN [None]
  - CLOSTRIDIUM DIFFICILE TOXIN TEST POSITIVE [None]
  - GASTROINTESTINAL MOTILITY DISORDER [None]
  - HAEMATOCHEZIA [None]
